FAERS Safety Report 4301114-7 (Version None)
Quarter: 2004Q1

REPORT INFORMATION
  Report Type: 
  Country: None (occurrence: None)
  Receive Date: 20040218
  Receipt Date: 20040211
  Transmission Date: 20041129
  Serious: Yes (Death)
  Sender: FDA-Public Use
  Company Number: F01200400249

PATIENT
  Age: 73 Year
  Sex: Female

DRUGS (4)
  1. OXALIPLATIN [Suspect]
     Indication: OVARIAN CANCER
     Dosage: 200 MG ON DAY 8 Q3W INTRAVENOUS NOS
     Route: 042
     Dates: start: 20040119, end: 20040119
  2. GEMCITABINE - SOLUTION - 937.5 MG/M2 [Suspect]
     Dosage: 1938 MG ON DAY 1 AND 8, Q3W INTRAVENOUS NOS
     Route: 042
     Dates: start: 20040119, end: 20040119
  3. FRAGMIN [Concomitant]
  4. WARFARIN SODIUM [Concomitant]

REACTIONS (7)
  - DEEP VEIN THROMBOSIS [None]
  - HAEMOGLOBIN DECREASED [None]
  - MUCOSAL INFLAMMATION [None]
  - NAUSEA [None]
  - NEUTROPENIC SEPSIS [None]
  - PLATELET COUNT DECREASED [None]
  - VOMITING [None]
